FAERS Safety Report 6093534-8 (Version None)
Quarter: 2009Q1

REPORT INFORMATION
  Report Type: 
  Country: None (occurrence: None)
  Receive Date: 20090226
  Receipt Date: 20090216
  Transmission Date: 20090719
  Serious: Yes (Hospitalization, Other)
  Sender: FDA-Public Use
  Company Number: US-TEVA-185690USA

PATIENT
  Age: 53 Year
  Sex: Male

DRUGS (2)
  1. CISPLATIN [Suspect]
     Indication: NON-SMALL CELL LUNG CANCER
  2. ETOPOSIDE [Suspect]
     Indication: NON-SMALL CELL LUNG CANCER

REACTIONS (1)
  - OESOPHAGEAL FISTULA [None]
